FAERS Safety Report 23327900 (Version 1)
Quarter: 2023Q4

REPORT INFORMATION
  Report Type: Spontaneous
  Country: SE (occurrence: None)
  Receive Date: 20231221
  Receipt Date: 20231221
  Transmission Date: 20240110
  Serious: Yes (Disabling, Other)
  Sender: FDA-Public Use
  Company Number: 2023A279770

PATIENT
  Age: 76 Year
  Sex: Male

DRUGS (4)
  1. LOSEC [Suspect]
     Active Substance: OMEPRAZOLE
     Indication: Gastrooesophageal reflux disease
     Dosage: 1X1
     Route: 048
     Dates: start: 20230524, end: 20231101
  2. CANDESARTAN [Concomitant]
     Active Substance: CANDESARTAN
     Dosage: 1X1
     Route: 048
  3. ATORVASTATIN [Concomitant]
     Active Substance: ATORVASTATIN
     Dosage: 1X1
     Route: 048
  4. FELODIPIN ACTAVIS [Concomitant]
     Dosage: 1X1
     Route: 048

REACTIONS (3)
  - Renal failure [Not Recovered/Not Resolved]
  - Anaemia [Not Recovered/Not Resolved]
  - Thrombocytopenia [Recovered/Resolved]

NARRATIVE: CASE EVENT DATE: 20230724
